FAERS Safety Report 9976574 (Version 1)
Quarter: 2014Q1

REPORT INFORMATION
  Report Type: Report from Study
  Country: US (occurrence: US)
  Receive Date: 20140306
  Receipt Date: 20140306
  Transmission Date: 20141002
  Serious: No
  Sender: FDA-Public Use
  Company Number: US-ABBVIE-13P-163-1167541-00

PATIENT
  Age: 66 Year
  Sex: Male
  Weight: 116.22 kg

DRUGS (5)
  1. HUMIRA [Suspect]
     Indication: PSORIASIS
     Route: 058
     Dates: start: 201307, end: 201310
  2. METFORMIN [Concomitant]
     Indication: PRODUCT USED FOR UNKNOWN INDICATION
  3. WARFARIN [Concomitant]
     Indication: PRODUCT USED FOR UNKNOWN INDICATION
  4. UNKNOWN HEART MEDICATION [Concomitant]
     Indication: CARDIAC DISORDER
  5. TRAMADOL [Concomitant]
     Indication: PRODUCT USED FOR UNKNOWN INDICATION

REACTIONS (4)
  - Skin fissures [Recovering/Resolving]
  - Skin haemorrhage [Recovered/Resolved]
  - Psoriasis [Recovering/Resolving]
  - Drug hypersensitivity [Unknown]
